FAERS Safety Report 23792527 (Version 2)
Quarter: 2024Q2

REPORT INFORMATION
  Report Type: Spontaneous
  Country: US (occurrence: US)
  Receive Date: 20240429
  Receipt Date: 20240502
  Transmission Date: 20240716
  Serious: No
  Sender: FDA-Public Use
  Company Number: US-JNJFOC-20170510060

PATIENT
  Age: 7 Year
  Sex: Male

DRUGS (5)
  1. RISPERDAL [Suspect]
     Active Substance: RISPERIDONE
     Indication: Attention deficit hyperactivity disorder
     Route: 048
  2. RISPERDAL [Suspect]
     Active Substance: RISPERIDONE
     Indication: Mood swings
     Dosage: 0.5 MG, TWICE DAILY
     Route: 048
     Dates: start: 20030225, end: 20040219
  3. RISPERDAL [Suspect]
     Active Substance: RISPERIDONE
     Indication: Depression
     Dosage: 0.25 MG, ONCE DAILY
     Route: 048
     Dates: start: 20060418
  4. RISPERDAL [Suspect]
     Active Substance: RISPERIDONE
     Dosage: 0.5 MG ONCE DAILY
     Route: 048
     Dates: start: 20070507, end: 20080728
  5. RISPERDAL [Suspect]
     Active Substance: RISPERIDONE
     Dosage: 1 MG, TWICE DAILY
     Route: 048
     Dates: start: 20101206

REACTIONS (3)
  - Drug ineffective for unapproved indication [Unknown]
  - Product dose omission issue [Unknown]
  - Off label use [Unknown]

NARRATIVE: CASE EVENT DATE: 20030101
